FAERS Safety Report 8490536-9 (Version None)
Quarter: 2012Q3

REPORT INFORMATION
  Report Type: 
  Country: None (occurrence: None)
  Receive Date: 20120705
  Receipt Date: 20120621
  Transmission Date: 20120928
  Serious: No
  Sender: FDA-Public Use
  Company Number: US-ASTRAZENECA-2012SE41868

PATIENT
  Age: 57 Year
  Sex: Male
  Weight: 108 kg

DRUGS (2)
  1. PULMICORT [Suspect]
     Dosage: 4-5 TIMES PER DAY
     Route: 055
  2. PULMICORT [Suspect]
     Dosage: 2 INHALATIONS TWICE DAILY
     Route: 055

REACTIONS (2)
  - PRODUCT TASTE ABNORMAL [None]
  - INTENTIONAL DRUG MISUSE [None]
